FAERS Safety Report 13709178 (Version 2)
Quarter: 2017Q3

REPORT INFORMATION
  Report Type: Spontaneous
  Country: GB (occurrence: GB)
  Receive Date: 20170702
  Receipt Date: 20170711
  Transmission Date: 20171127
  Serious: Yes (Other)
  Sender: FDA-Public Use
  Company Number: GB-MYLANLABS-2017M1039719

PATIENT

DRUGS (1)
  1. CLOZARIL [Suspect]
     Active Substance: CLOZAPINE
     Indication: SCHIZOPHRENIA
     Dosage: UNK
     Route: 048
     Dates: start: 20080916

REACTIONS (7)
  - Monocyte percentage increased [Unknown]
  - Neutrophil count decreased [Not Recovered/Not Resolved]
  - Neutrophil count increased [Unknown]
  - White blood cell count decreased [Recovered/Resolved]
  - Platelet count decreased [Not Recovered/Not Resolved]
  - Lymphocyte percentage increased [Unknown]
  - Eosinophil percentage decreased [Unknown]

NARRATIVE: CASE EVENT DATE: 20170613
